FAERS Safety Report 9498665 (Version 3)
Quarter: 2013Q3

REPORT INFORMATION
  Report Type: Spontaneous
  Country: US (occurrence: US)
  Receive Date: 20130904
  Receipt Date: 20130920
  Transmission Date: 20140515
  Serious: No
  Sender: FDA-Public Use
  Company Number: US-PFIZER INC-2013254476

PATIENT
  Age: 38 Year
  Sex: Female

DRUGS (4)
  1. MOTRIN IB [Suspect]
     Indication: PAIN
     Dosage: UNK
  2. TYLENOL WITH CODEINE [Concomitant]
     Dosage: UNK
  3. ULTRAM [Concomitant]
     Dosage: UNK
  4. NUEDEXTA [Concomitant]
     Dosage: UNK

REACTIONS (2)
  - Dizziness [Recovered/Resolved]
  - Hypotension [Recovered/Resolved]
